FAERS Safety Report 21203971 (Version 1)
Quarter: 2022Q3

REPORT INFORMATION
  Report Type: Spontaneous
  Country: CN (occurrence: None)
  Receive Date: 20220811
  Receipt Date: 20220811
  Transmission Date: 20221027
  Serious: Yes (Other)
  Sender: FDA-Public Use
  Company Number: 2022A276236

PATIENT
  Age: 76 Year
  Sex: Female

DRUGS (2)
  1. OSIMERTINIB [Suspect]
     Active Substance: OSIMERTINIB
     Indication: Non-small cell lung cancer stage IV
     Route: 048
     Dates: start: 20200103
  2. TECHNETIUM METHYLENE DIPHOSPHONATE [Concomitant]
     Indication: Metastases to bone

REACTIONS (6)
  - Metastases to liver [Unknown]
  - EGFR gene mutation [Unknown]
  - Malignant neoplasm progression [Not Recovered/Not Resolved]
  - Superior vena cava occlusion [Unknown]
  - TP53 gene mutation [Unknown]
  - Metastases to central nervous system [Unknown]

NARRATIVE: CASE EVENT DATE: 20201101
